FAERS Safety Report 20620691 (Version 3)
Quarter: 2022Q2

REPORT INFORMATION
  Report Type: Spontaneous
  Country: US (occurrence: US)
  Receive Date: 20220322
  Receipt Date: 20220601
  Transmission Date: 20220721
  Serious: Yes (Hospitalization, Other)
  Sender: FDA-Public Use
  Company Number: US-SA-SAC20220317000155

PATIENT
  Age: 49 Year
  Sex: Female
  Weight: 133.81 kg

DRUGS (21)
  1. AUBAGIO [Suspect]
     Active Substance: TERIFLUNOMIDE
     Indication: Multiple sclerosis
     Dosage: 1 DF, QD
     Route: 048
     Dates: start: 202009
  2. METHYLPREDNISOLONE SODIUM SUCCINATE [Suspect]
     Active Substance: METHYLPREDNISOLONE SODIUM SUCCINATE
  3. LORTAB [Suspect]
     Active Substance: ACETAMINOPHEN\HYDROCODONE BITARTRATE
  4. RYBELSUS [Concomitant]
     Active Substance: SEMAGLUTIDE
  5. XANAX [Concomitant]
     Active Substance: ALPRAZOLAM
  6. RIZATRIPTAN [Concomitant]
     Active Substance: RIZATRIPTAN
  7. MENAQUINONE 6 [Concomitant]
     Active Substance: MENAQUINONE 6
  8. VITAMIN D3 [Concomitant]
     Active Substance: CHOLECALCIFEROL
  9. JARDIANCE [Concomitant]
     Active Substance: EMPAGLIFLOZIN
  10. METHIMAZOLE [Concomitant]
     Active Substance: METHIMAZOLE
  11. VITAMIN B12 [Concomitant]
     Active Substance: CYANOCOBALAMIN
  12. B12 ACTIVE [Concomitant]
  13. VITAMINS D3 [Concomitant]
     Dosage: 1 DF
     Route: 048
  14. MAXALT [Concomitant]
     Active Substance: RIZATRIPTAN BENZOATE
     Dosage: 1 AT ONSET OF HA, MAY REPEAT X 1 IN 2 HRS, MAX 3/24 HRS
  15. CYMBALTA [Concomitant]
     Active Substance: DULOXETINE HYDROCHLORIDE
     Dosage: 2 DF
  16. H.P. ACTHAR [Concomitant]
     Active Substance: CORTICOTROPIN
     Dosage: 1 ML 1M Q DAY X 5 DAYS
  17. MAGNESIUM [Concomitant]
     Active Substance: MAGNESIUM
     Dosage: 1 DF
     Route: 048
  18. TIZANIDINE HYDROCHLORIDE [Concomitant]
     Active Substance: TIZANIDINE HYDROCHLORIDE
     Dosage: 1 DF
     Route: 048
  19. ARMOUR THYROID [Concomitant]
     Active Substance: THYROID, PORCINE
     Dosage: 1 DF
  20. ARMOUR THYROID [Concomitant]
     Active Substance: THYROID, PORCINE
     Dosage: STRENGTH: 30 MG
     Route: 048
  21. VITAMIN K 2 [Concomitant]
     Route: 048

REACTIONS (23)
  - Urticaria [Unknown]
  - Generalised oedema [Unknown]
  - Drug hypersensitivity [Unknown]
  - Multiple sclerosis relapse [Unknown]
  - Pain [Unknown]
  - Fatigue [Unknown]
  - Cerebral disorder [Unknown]
  - Sleep apnoea syndrome [Unknown]
  - Depressed mood [Unknown]
  - Headache [Unknown]
  - Muscle spasms [Unknown]
  - Hypoaesthesia [Unknown]
  - Neuralgia [Unknown]
  - Burning sensation [Unknown]
  - Disturbance in attention [Unknown]
  - Ataxia [Unknown]
  - Urge incontinence [Unknown]
  - Vitamin D deficiency [Unknown]
  - Back pain [Unknown]
  - Malaise [Unknown]
  - Balance disorder [Unknown]
  - Asthenia [Unknown]
  - Product dose omission in error [Unknown]
